FAERS Safety Report 7074091-6 (Version None)
Quarter: 2010Q4

REPORT INFORMATION
  Report Type: 
  Country: None (occurrence: None)
  Receive Date: 20101029
  Receipt Date: 20101020
  Transmission Date: 20110411
  Serious: Yes (Other)
  Sender: FDA-Public Use
  Company Number: JP-JNJFOC-20101006360

PATIENT
  Age: 42 Year
  Sex: Female

DRUGS (10)
  1. REMICADE [Suspect]
     Indication: RHEUMATOID ARTHRITIS
     Route: 042
  2. REMICADE [Suspect]
     Route: 042
  3. REMICADE [Suspect]
     Route: 042
  4. REMICADE [Suspect]
     Route: 042
  5. REMICADE [Suspect]
     Route: 042
  6. TOCILIZUMAB [Suspect]
     Indication: RHEUMATOID ARTHRITIS
  7. TOCILIZUMAB [Suspect]
  8. TOCILIZUMAB [Suspect]
  9. PREDNISOLONE [Suspect]
     Indication: RHEUMATOID ARTHRITIS
  10. METHOTREXATE [Suspect]
     Indication: RHEUMATOID ARTHRITIS

REACTIONS (2)
  - CUTANEOUS LUPUS ERYTHEMATOSUS [None]
  - URTICARIA [None]
